FAERS Safety Report 9170899 (Version 1)
Quarter: 2013Q1

REPORT INFORMATION
  Report Type: Spontaneous
  Country: GB (occurrence: None)
  Receive Date: 20130311
  Receipt Date: 20130311
  Transmission Date: 20140127
  Serious: Yes (Hospitalization, Other)
  Sender: FDA-Public Use
  Company Number: 2013P1002842

PATIENT
  Age: 49 Year
  Sex: Female

DRUGS (1)
  1. HYDROCORTISONE [Suspect]
     Indication: PITUITARY TUMOUR BENIGN

REACTIONS (7)
  - Acute focal bacterial nephritis [None]
  - Abdominal pain lower [None]
  - Pyrexia [None]
  - Vomiting [None]
  - Hypotension [None]
  - White blood cell count increased [None]
  - Escherichia urinary tract infection [None]
